FAERS Safety Report 7866570-6 (Version None)
Quarter: 2011Q4

REPORT INFORMATION
  Report Type: 
  Country: None (occurrence: None)
  Receive Date: 20111028
  Receipt Date: 20110707
  Transmission Date: 20120403
  Serious: No
  Sender: FDA-Public Use
  Company Number: US-GLAXOSMITHKLINE-A0935348A

PATIENT
  Age: 66 Year
  Sex: Female

DRUGS (11)
  1. ESCITALOPRAM [Concomitant]
  2. DILTIAZEM HCL [Concomitant]
  3. FUROSEMIDE [Concomitant]
  4. ATORVASTATIN CALCIUM [Concomitant]
  5. ADVAIR DISKUS 100/50 [Suspect]
     Indication: CHRONIC OBSTRUCTIVE PULMONARY DISEASE
     Dosage: 1PUFF TWICE PER DAY
     Route: 055
     Dates: start: 20070101
  6. KLOR-CON [Concomitant]
  7. ASPIRIN [Concomitant]
  8. DIGOXIN [Concomitant]
  9. LIPITOR [Concomitant]
  10. DIOVAN [Concomitant]
  11. METOPROLOL TARTRATE [Concomitant]

REACTIONS (4)
  - PRODUCT QUALITY ISSUE [None]
  - DYSPNOEA [None]
  - FATIGUE [None]
  - WHEEZING [None]
